FAERS Safety Report 17432634 (Version 1)
Quarter: 2020Q1

REPORT INFORMATION
  Report Type: Report from Study
  Country: IT (occurrence: IT)
  Receive Date: 20200218
  Receipt Date: 20200218
  Transmission Date: 20200409
  Serious: Yes (Hospitalization)
  Sender: FDA-Public Use
  Company Number: IT-BRISTOL-MYERS SQUIBB COMPANY-BMS-2020-013003

PATIENT
  Age: 86 Year
  Sex: Male

DRUGS (2)
  1. ASPIRIN. [Interacting]
     Active Substance: ASPIRIN
     Indication: ATRIAL FIBRILLATION
     Dosage: UNK
     Route: 065
     Dates: start: 20141224, end: 20191003
  2. WARFARIN SODIUM. [Suspect]
     Active Substance: WARFARIN SODIUM
     Indication: ATRIAL FIBRILLATION
     Dosage: 5 MILLIGRAM, AS NECESSARY
     Route: 065
     Dates: start: 20150424

REACTIONS (2)
  - Labelled drug-drug interaction medication error [Recovering/Resolving]
  - Traumatic haematoma [Recovering/Resolving]
